FAERS Safety Report 13712924 (Version 2)
Quarter: 2017Q4

REPORT INFORMATION
  Report Type: Spontaneous
  Country: US (occurrence: US)
  Receive Date: 20170703
  Receipt Date: 20171004
  Transmission Date: 20180320
  Serious: Yes (Hospitalization, Other)
  Sender: FDA-Public Use
  Company Number: US-BRISTOL-MYERS SQUIBB COMPANY-BMS-2017-057113

PATIENT
  Sex: Female
  Weight: 47.62 kg

DRUGS (1)
  1. ELIQUIS [Suspect]
     Active Substance: APIXABAN
     Indication: CEREBROVASCULAR ACCIDENT PROPHYLAXIS
     Dosage: 5 MG, BID
     Route: 048

REACTIONS (6)
  - Blood iron decreased [Unknown]
  - Large intestinal haemorrhage [Recovered/Resolved]
  - Dizziness [Unknown]
  - Blood urine present [Unknown]
  - Full blood count decreased [Unknown]
  - Asthenia [Unknown]
